FAERS Safety Report 14629859 (Version 1)
Quarter: 2018Q1

REPORT INFORMATION
  Report Type: Report from Study
  Country: US (occurrence: US)
  Receive Date: 20180313
  Receipt Date: 20180313
  Transmission Date: 20180509
  Serious: Yes (Other)
  Sender: FDA-Public Use
  Company Number: US-AUROBINDO-AUR-APL-2018-013916

PATIENT
  Age: 65 Year
  Sex: Female

DRUGS (2)
  1. LORAZEPAM. [Suspect]
     Active Substance: LORAZEPAM
     Indication: PRODUCT USED FOR UNKNOWN INDICATION
     Dosage: UNK
  2. FENTANYL. [Suspect]
     Active Substance: FENTANYL
     Indication: PSYCHOTIC BEHAVIOUR
     Dosage: 30 MILLIGRAM

REACTIONS (5)
  - Respiratory distress [Unknown]
  - Respiratory acidosis [Unknown]
  - Encephalopathy [Unknown]
  - Hypoxia [Unknown]
  - Rhabdomyolysis [Unknown]
